FAERS Safety Report 13070545 (Version 2)
Quarter: 2017Q1

REPORT INFORMATION
  Report Type: Spontaneous
  Country: CA (occurrence: CA)
  Receive Date: 20161229
  Receipt Date: 20170129
  Transmission Date: 20170428
  Serious: Yes (Hospitalization, Other)
  Sender: FDA-Public Use
  Company Number: CA-CONCORDIA PHARMACEUTICALS INC.-GSH201612-006542

PATIENT
  Age: 86 Year
  Sex: Female

DRUGS (6)
  1. LEFLUNOMIDE. [Suspect]
     Active Substance: LEFLUNOMIDE
     Indication: RHEUMATOID ARTHRITIS
     Route: 048
  2. CIMZIA [Suspect]
     Active Substance: CERTOLIZUMAB PEGOL
     Route: 065
     Dates: start: 2012, end: 201509
  3. METHOTREXATE SODIUM. [Suspect]
     Active Substance: METHOTREXATE SODIUM
     Indication: RHEUMATOID ARTHRITIS
     Dosage: 17.5-25 MG
     Route: 048
     Dates: start: 200107, end: 201509
  4. PLAQUENIL [Suspect]
     Active Substance: HYDROXYCHLOROQUINE SULFATE
     Route: 065
     Dates: start: 200010, end: 200811
  5. LEFLUNOMIDE. [Suspect]
     Active Substance: LEFLUNOMIDE
     Route: 048
     Dates: start: 201101
  6. ENBREL [Concomitant]
     Active Substance: ETANERCEPT
     Indication: RHEUMATOID ARTHRITIS
     Dates: start: 201012, end: 201101

REACTIONS (5)
  - Wound infection [Unknown]
  - Cardiac failure congestive [Unknown]
  - Malaise [Unknown]
  - Drug ineffective [Unknown]
  - Osteomyelitis [Unknown]
